FAERS Safety Report 15545398 (Version 1)
Quarter: 2018Q4

REPORT INFORMATION
  Report Type: Spontaneous
  Country: IT (occurrence: IT)
  Receive Date: 20181024
  Receipt Date: 20181024
  Transmission Date: 20190205
  Serious: Yes (Other)
  Sender: FDA-Public Use
  Company Number: IT-TEVA-2018-IT-967793

PATIENT
  Age: 3 Year
  Sex: Male
  Weight: 23 kg

DRUGS (1)
  1. AMOXICILLIN. [Suspect]
     Active Substance: AMOXICILLIN
     Indication: OTITIS MEDIA
     Route: 065
     Dates: start: 20180924, end: 20180926

REACTIONS (2)
  - Dermatitis bullous [Unknown]
  - Rash [Unknown]

NARRATIVE: CASE EVENT DATE: 20180925
